FAERS Safety Report 14896731 (Version 3)
Quarter: 2018Q4

REPORT INFORMATION
  Report Type: Spontaneous
  Country: US (occurrence: US)
  Receive Date: 20180515
  Receipt Date: 20181030
  Transmission Date: 20190204
  Serious: No
  Sender: FDA-Public Use
  Company Number: US-BIOMARINAP-US-2018-118152

PATIENT
  Sex: Female
  Weight: 51.02 kg

DRUGS (1)
  1. KUVAN [Suspect]
     Active Substance: SAPROPTERIN DIHYDROCHLORIDE
     Indication: PHENYLKETONURIA
     Dosage: 800 MG, QD
     Route: 048
     Dates: start: 20180131

REACTIONS (3)
  - Psychomotor hyperactivity [Recovered/Resolved]
  - Depressed mood [Unknown]
  - Mood swings [Unknown]
